FAERS Safety Report 4312507-6 (Version None)
Quarter: 2004Q1

REPORT INFORMATION
  Report Type: 
  Country: None (occurrence: None)
  Receive Date: 20040302
  Receipt Date: 20031119
  Transmission Date: 20041129
  Serious: No
  Sender: FDA-Public Use
  Company Number: 701109

PATIENT
  Age: 67 Year
  Sex: Male

DRUGS (3)
  1. AMEVIVE [Suspect]
     Indication: PSORIASIS
     Dosage: 15 MG QW IM
     Route: 030
     Dates: start: 20030822, end: 20030902
  2. NEORAL [Concomitant]
  3. ENBREL [Concomitant]

REACTIONS (3)
  - CD4 LYMPHOCYTES DECREASED [None]
  - HEADACHE [None]
  - MUSCLE CRAMP [None]
